FAERS Safety Report 7747224-3 (Version None)
Quarter: 2011Q3

REPORT INFORMATION
  Report Type: 
  Country: None (occurrence: None)
  Receive Date: 20110909
  Receipt Date: 20110825
  Transmission Date: 20111222
  Serious: Yes (Hospitalization)
  Sender: FDA-Public Use
  Company Number: 2011US0195

PATIENT
  Sex: Female
  Weight: 15 kg

DRUGS (7)
  1. KINERET [Suspect]
     Indication: JUVENILE ARTHRITIS
     Dosage: 1 IN 1 D, SUBCUTANEOUS
     Route: 058
     Dates: start: 20081201, end: 20110401
  2. NAPROXEN [Concomitant]
  3. PREDNISONE [Concomitant]
  4. NEORAL [Concomitant]
  5. ILARIS (CANAKINUMAB) [Concomitant]
  6. METHOTREXATE (DINATRIUMMETOTREXAT) [Concomitant]
  7. FOLIC ACID (FOLIC ACID, B VITAMIN) [Concomitant]

REACTIONS (8)
  - JUVENILE ARTHRITIS [None]
  - THERAPEUTIC PRODUCT INEFFECTIVE FOR UNAPPROVED INDICATION [None]
  - EOSINOPHILIA [None]
  - CONDITION AGGRAVATED [None]
  - HISTIOCYTOSIS HAEMATOPHAGIC [None]
  - CLUBBING [None]
  - BRONCHIECTASIS [None]
  - LYMPHADENOPATHY [None]
